FAERS Safety Report 15475036 (Version 1)
Quarter: 2018Q4

REPORT INFORMATION
  Report Type: Report from Study
  Country: BR (occurrence: BR)
  Receive Date: 20181008
  Receipt Date: 20181008
  Transmission Date: 20190205
  Serious: Yes (Other)
  Sender: FDA-Public Use
  Company Number: BR-MYLANLABS-2018M1072754

PATIENT
  Age: 24 Year
  Sex: Male

DRUGS (1)
  1. PHENYTOIN. [Suspect]
     Active Substance: PHENYTOIN
     Indication: PETIT MAL EPILEPSY
     Route: 065

REACTIONS (4)
  - Hypogammaglobulinaemia [Recovered/Resolved]
  - Sinusitis [Recovering/Resolving]
  - Respiratory tract infection [Recovering/Resolving]
  - Diarrhoea [Recovering/Resolving]
